FAERS Safety Report 4639592-6 (Version None)
Quarter: 2005Q2

REPORT INFORMATION
  Report Type: 
  Country: None (occurrence: None)
  Receive Date: 20050328
  Receipt Date: 20050208
  Transmission Date: 20051028
  Serious: No
  Sender: FDA-Public Use
  Company Number: USA050290286

PATIENT
  Sex: Female

DRUGS (7)
  1. STRATTERA [Suspect]
     Indication: ATTENTION DEFICIT/HYPERACTIVITY DISORDER
     Dosage: 60 MG DAY
     Dates: start: 20040101
  2. ZYRTEC [Concomitant]
  3. SYNTHROID [Concomitant]
  4. CYTOMEL (LIOTHYROMINE SODIUM) [Concomitant]
  5. ORAL CONTRACEPTIVE NOS [Concomitant]
  6. MULTI-VITAMINS [Concomitant]
  7. MAGNESIUM [Concomitant]

REACTIONS (2)
  - MEMORY IMPAIRMENT [None]
  - UTERINE DILATION AND CURETTAGE [None]
